FAERS Safety Report 12295751 (Version 1)
Quarter: 2016Q2

REPORT INFORMATION
  Report Type: Spontaneous
  Country: US (occurrence: US)
  Receive Date: 20160422
  Receipt Date: 20160422
  Transmission Date: 20160815
  Serious: Yes (Other)
  Sender: FDA-Public Use
  Company Number: US-PURDUE PHARMA-USA-2016-0128735

PATIENT
  Sex: Female

DRUGS (4)
  1. OXYMORPHONE [Suspect]
     Active Substance: OXYMORPHONE
     Indication: DRUG ABUSE
     Route: 065
  2. HYDROCODONE BITARTRATE (SIMILAR TO IND 59,175) [Suspect]
     Active Substance: HYDROCODONE BITARTRATE
     Indication: DRUG ABUSE
     Route: 048
  3. OPANA [Suspect]
     Active Substance: OXYMORPHONE HYDROCHLORIDE
     Indication: DRUG ABUSE
     Route: 065
  4. OXYCODONE HCL CR TABLETS (SIMILAR TO NDA 22-272) [Suspect]
     Active Substance: OXYCODONE HYDROCHLORIDE
     Indication: DRUG ABUSE
     Route: 048

REACTIONS (1)
  - Drug abuse [Unknown]
